FAERS Safety Report 19993158 (Version 2)
Quarter: 2021Q4

REPORT INFORMATION
  Report Type: Report from Study
  Country: US (occurrence: US)
  Receive Date: 20211025
  Receipt Date: 20211116
  Transmission Date: 20220303
  Serious: Yes (Hospitalization)
  Sender: FDA-Public Use
  Company Number: US-TAKEDA-2021TUS058118

PATIENT
  Sex: Female
  Weight: 54 kg

DRUGS (30)
  1. HUMAN IMMUNOGLOBULIN G [Suspect]
     Active Substance: HUMAN IMMUNOGLOBULIN G
     Indication: Immunodeficiency common variable
     Dosage: 20 GRAM, Q2WEEKS
     Route: 058
     Dates: start: 20200311
  2. ACETAMINOPHEN [Concomitant]
     Active Substance: ACETAMINOPHEN
  3. DIPHENHYDRAMINE [Concomitant]
     Active Substance: DIPHENHYDRAMINE
  4. EPINEPHRINE [Concomitant]
     Active Substance: EPINEPHRINE
  5. HUMALOG [Concomitant]
     Active Substance: INSULIN LISPRO
  6. ATORVASTATIN [Concomitant]
     Active Substance: ATORVASTATIN
  7. NOVOLOG [Concomitant]
     Active Substance: INSULIN ASPART
  8. SYMBICORT [Concomitant]
     Active Substance: BUDESONIDE\FORMOTEROL FUMARATE DIHYDRATE
  9. ALBUTEROL\IPRATROPIUM [Concomitant]
     Active Substance: ALBUTEROL\IPRATROPIUM
  10. ISOSORBIDE DINITRATE [Concomitant]
     Active Substance: ISOSORBIDE DINITRATE
  11. TRAMADOL [Concomitant]
     Active Substance: TRAMADOL
  12. CLARITHROMYCIN [Concomitant]
     Active Substance: CLARITHROMYCIN
  13. FUROSEMIDE [Concomitant]
     Active Substance: FUROSEMIDE
  14. NITROSTAT [Concomitant]
     Active Substance: NITROGLYCERIN
  15. FAMOTIDINE [Concomitant]
     Active Substance: FAMOTIDINE
  16. ASPIRIN [Concomitant]
     Active Substance: ASPIRIN
  17. LISINOPRIL [Concomitant]
     Active Substance: LISINOPRIL
  18. PULMICORT TURBUHALER [Concomitant]
     Active Substance: BUDESONIDE
  19. CLONIDINE [Concomitant]
     Active Substance: CLONIDINE
  20. ZOLPIDEM [Concomitant]
     Active Substance: ZOLPIDEM TARTRATE
  21. LINZESS [Concomitant]
     Active Substance: LINACLOTIDE
  22. Lmx [Concomitant]
  23. ALBUTEROL [Concomitant]
     Active Substance: ALBUTEROL
  24. NITROGLYCERIN [Concomitant]
     Active Substance: NITROGLYCERIN
  25. SPIRIVA [Concomitant]
     Active Substance: TIOTROPIUM BROMIDE MONOHYDRATE
  26. CHEST CONGESTION [Concomitant]
     Active Substance: GUAIFENESIN
  27. VERAPAMIL [Concomitant]
     Active Substance: VERAPAMIL HYDROCHLORIDE
  28. BROVANA [Concomitant]
     Active Substance: ARFORMOTEROL TARTRATE
  29. METFORMIN [Concomitant]
     Active Substance: METFORMIN HYDROCHLORIDE
  30. OMEPRAZOLE [Concomitant]
     Active Substance: OMEPRAZOLE

REACTIONS (2)
  - Blood pressure increased [Unknown]
  - Seasonal allergy [Recovered/Resolved]
